FAERS Safety Report 6792715-5 (Version None)
Quarter: 2010Q2

REPORT INFORMATION
  Report Type: 
  Country: None (occurrence: None)
  Receive Date: 20100624
  Receipt Date: 20081003
  Transmission Date: 20101027
  Serious: No
  Sender: FDA-Public Use
  Company Number: US-PFIZER INC-2008078979

PATIENT
  Age: 45 Year
  Sex: Female
  Weight: 72.57 kg

DRUGS (2)
  1. GEODON [Suspect]
     Indication: BIPOLAR DISORDER
  2. GEODON [Suspect]
     Indication: MANIA

REACTIONS (2)
  - INCORRECT DOSE ADMINISTERED [None]
  - TREMOR [None]
